FAERS Safety Report 9252446 (Version 1)
Quarter: 2013Q1

REPORT INFORMATION
  Report Type: Spontaneous
  Country: US (occurrence: None)
  Receive Date: 20130305
  Receipt Date: 20130305
  Transmission Date: 20140127
  Serious: Yes (Other)
  Sender: FDA-Public Use
  Company Number: 163-21880-12092549

PATIENT
  Age: 77 Year
  Sex: Male

DRUGS (4)
  1. REVLIMID [Suspect]
     Indication: PLASMA CELL MYELOMA
     Dates: start: 201202
  2. CARDURA (DOXAZOSIN MESILATE) (UNKNOWN) [Concomitant]
  3. ADVAIR (SERETIDE MITE) (UNKNOWN) [Concomitant]
  4. ASA (ACETYLSALICYLIC ACID) [Concomitant]

REACTIONS (2)
  - White blood cell count decreased [None]
  - Neutrophil count decreased [None]
